FAERS Safety Report 5282478-7 (Version None)
Quarter: 2007Q1

REPORT INFORMATION
  Report Type: 
  Country: None (occurrence: None)
  Receive Date: 20070326
  Receipt Date: 20070110
  Transmission Date: 20070707
  Serious: Yes (Other)
  Sender: FDA-Public Use
  Company Number: 2007AL001057

PATIENT
  Sex: Male

DRUGS (2)
  1. PROPYLTHIOURACIL [Suspect]
     Indication: BASEDOW'S DISEASE
     Dosage: PO
     Route: 048
     Dates: start: 19950101, end: 20040101
  2. PROPYLTHIOURACIL [Suspect]
     Indication: HYPERTHYROIDISM
     Dosage: PO
     Route: 048
     Dates: start: 19950101, end: 20040101

REACTIONS (6)
  - ANAEMIA [None]
  - HAEMOPTYSIS [None]
  - LUNG INFILTRATION [None]
  - RENAL FAILURE ACUTE [None]
  - VASCULITIS [None]
  - WEGENER'S GRANULOMATOSIS [None]
